FAERS Safety Report 8433245 (Version 5)
Quarter: 2012Q4

REPORT INFORMATION
  Report Type: Report from Study
  Country: JP (occurrence: JP)
  Receive Date: 20120229
  Receipt Date: 20121026
  Transmission Date: 20130627
  Serious: Yes (Hospitalization)
  Sender: FDA-Public Use
  Company Number: JP-EISAI INC-E7389-02116-CLI-JP

PATIENT
  Sex: Female
  Weight: 41 kg

DRUGS (9)
  1. HALAVEN [Suspect]
     Indication: BREAST CANCER RECURRENT
     Route: 041
     Dates: start: 20110823, end: 20110913
  2. HALAVEN [Suspect]
     Indication: METASTASES TO BONE
     Route: 041
     Dates: start: 20110922
  3. HALAVEN [Suspect]
     Indication: METASTASES TO UTERUS
  4. DECADRON [Concomitant]
     Indication: PROPHYLAXIS
     Route: 041
  5. PARIET [Concomitant]
     Indication: PROPHYLAXIS
     Route: 048
  6. PRERAN [Concomitant]
     Route: 048
  7. BAYASPIRIN [Concomitant]
     Route: 048
  8. VASOLAN [Concomitant]
     Route: 048
  9. MAINTATE [Concomitant]
     Indication: PROPHYLAXIS
     Route: 048

REACTIONS (2)
  - Supraventricular tachycardia [Recovering/Resolving]
  - Interstitial lung disease [Not Recovered/Not Resolved]
